FAERS Safety Report 7904829-4 (Version None)
Quarter: 2011Q4

REPORT INFORMATION
  Report Type: 
  Country: None (occurrence: None)
  Receive Date: 20111109
  Receipt Date: 20111027
  Transmission Date: 20120403
  Serious: Yes (Other)
  Sender: FDA-Public Use
  Company Number: PHHY2011ES94712

PATIENT
  Age: 42 Year
  Sex: Female

DRUGS (4)
  1. TASIGNA [Suspect]
     Dosage: 200 MG, QD
     Route: 048
     Dates: start: 20111025
  2. TASIGNA [Suspect]
     Indication: ACUTE LYMPHOCYTIC LEUKAEMIA
     Dosage: 200 MG, Q48H
     Route: 048
     Dates: start: 20111019
  3. PREDNISONE [Concomitant]
     Dosage: UNK UKN, UNK
  4. CHEMOTHERAPEUTICS [Concomitant]
     Dosage: UNK UKN, UNK

REACTIONS (2)
  - POLYNEUROPATHY [None]
  - HEPATIC ENZYME ABNORMAL [None]
